FAERS Safety Report 23475234 (Version 1)
Quarter: 2024Q1

REPORT INFORMATION
  Report Type: Spontaneous
  Country: JP (occurrence: JP)
  Receive Date: 20240204
  Receipt Date: 20240204
  Transmission Date: 20240410
  Serious: No
  Sender: FDA-Public Use
  Company Number: JP-TAKEDA-2022TJP079050

PATIENT
  Age: 7 Decade
  Sex: Male

DRUGS (5)
  1. CABOMETYX [Suspect]
     Active Substance: CABOZANTINIB S-MALATE
     Indication: Renal cancer
     Dosage: 40 MG, QD
     Route: 048
  2. CABOMETYX [Suspect]
     Active Substance: CABOZANTINIB S-MALATE
     Dosage: 20 MG, QD
     Route: 048
  3. AMLODIPINE [Concomitant]
     Active Substance: AMLODIPINE BESYLATE
     Dosage: 5 MG, QD
     Route: 065
  4. URSODIOL [Concomitant]
     Active Substance: URSODIOL
     Dosage: 100 MG, TID
     Route: 065
  5. HEPARINOID [Concomitant]
     Dosage: UNK
     Route: 065

REACTIONS (4)
  - Polycythaemia [Recovered/Resolved]
  - Liver function test increased [Unknown]
  - Coronavirus test positive [Recovered/Resolved]
  - Rash [Recovered/Resolved]

NARRATIVE: CASE EVENT DATE: 20221215
